FAERS Safety Report 8827590 (Version 1)
Quarter: 2012Q4

REPORT INFORMATION
  Report Type: 
  Country: GB (occurrence: GB)
  Receive Date: 20121008
  Receipt Date: 20121008
  Transmission Date: 20130627
  Serious: Yes (Other)
  Sender: FDA-Public Use
  Company Number: GB-JNJFOC-20121001823

PATIENT

DRUGS (2)
  1. CALPOL [Suspect]
     Route: 065
  2. CALPOL [Suspect]
     Indication: SLEEP DISORDER THERAPY
     Route: 065

REACTIONS (2)
  - Drug abuse [Unknown]
  - Therapeutic response unexpected [Unknown]
